FAERS Safety Report 10082478 (Version 3)
Quarter: 2014Q2

REPORT INFORMATION
  Report Type: Spontaneous
  Country: US (occurrence: US)
  Receive Date: 20140416
  Receipt Date: 20140429
  Transmission Date: 20141212
  Serious: Yes (Death)
  Sender: FDA-Public Use
  Company Number: US-ACTELION-A-US2014-97585

PATIENT
  Age: 66 Year
  Sex: Female

DRUGS (3)
  1. TRACLEER [Suspect]
     Indication: PULMONARY ARTERIAL HYPERTENSION
     Dosage: UNK
     Route: 048
     Dates: end: 20140410
  2. RIOCIGUAT [Concomitant]
     Dosage: 1.5 MG, UNK
     Dates: start: 20140407, end: 201404
  3. REMODULIN [Concomitant]

REACTIONS (6)
  - Cardiac failure [Fatal]
  - Pulmonary hypertension [Fatal]
  - Syncope [Unknown]
  - Hypotension [Unknown]
  - Dyspnoea [Unknown]
  - Cyanosis [Unknown]
